FAERS Safety Report 12225631 (Version 1)
Quarter: 2016Q1

REPORT INFORMATION
  Report Type: Spontaneous
  Country: US (occurrence: US)
  Receive Date: 20160331
  Receipt Date: 20160331
  Transmission Date: 20160526
  Serious: No
  Sender: FDA-Public Use
  Company Number: US-BAYER-2016-058993

PATIENT
  Age: 10 Year
  Sex: Female

DRUGS (1)
  1. CHILDREN CLARITIN ALLERGY [Suspect]
     Active Substance: LORATADINE
     Dosage: 2 DF, UNK
     Route: 048
     Dates: start: 20160323

REACTIONS (1)
  - Product use issue [Recovered/Resolved]

NARRATIVE: CASE EVENT DATE: 20160323
